FAERS Safety Report 19602908 (Version 2)
Quarter: 2021Q3

REPORT INFORMATION
  Report Type: Report from Study
  Country: MX (occurrence: MX)
  Receive Date: 20210723
  Receipt Date: 20210729
  Transmission Date: 20211014
  Serious: Yes (Death)
  Sender: FDA-Public Use
  Company Number: NVSC2021MX166826

PATIENT
  Age: 64 Year
  Sex: Male
  Weight: 80 kg

DRUGS (2)
  1. EXFORGE HCT [Suspect]
     Active Substance: AMLODIPINE BESYLATE\HYDROCHLOROTHIAZIDE\VALSARTAN
     Indication: HYPERTENSION
     Dosage: 0.5 DF, Q12H
     Route: 048
     Dates: start: 2019
  2. ASPIRIN PROTECT [Concomitant]
     Active Substance: ASPIRIN
     Indication: ANTICOAGULANT THERAPY
     Dosage: 1 DF, QD AT NIGHT (STARTED AT 2 YEARS AGO)
     Route: 048

REACTIONS (2)
  - Wrong technique in product usage process [Unknown]
  - Cerebrovascular accident [Fatal]

NARRATIVE: CASE EVENT DATE: 2019
